FAERS Safety Report 4590118-5 (Version None)
Quarter: 2005Q1

REPORT INFORMATION
  Report Type: 
  Country: None (occurrence: None)
  Receive Date: 20050217
  Receipt Date: 20050217
  Transmission Date: 20050727
  Serious: Yes (Other)
  Sender: FDA-Public Use
  Company Number: None

PATIENT
  Age: 57 Year
  Sex: Male
  Weight: 110.7 kg

DRUGS (4)
  1. FLOMAX [Suspect]
  2. SILDENAFIL CITRATE [Concomitant]
  3. LISINOPRIL [Concomitant]
  4. FINASTERIDE [Concomitant]

REACTIONS (1)
  - HYPOTENSION [None]
